FAERS Safety Report 10005538 (Version 3)
Quarter: 2014Q2

REPORT INFORMATION
  Report Type: Spontaneous
  Country: US (occurrence: US)
  Receive Date: 20140313
  Receipt Date: 20140401
  Transmission Date: 20141212
  Serious: No
  Sender: FDA-Public Use
  Company Number: US-009507513-1403USA004831

PATIENT
  Sex: Female

DRUGS (1)
  1. DULERA [Suspect]
     Dosage: INHALER
     Route: 055
     Dates: start: 20140304

REACTIONS (7)
  - Dysphonia [Unknown]
  - Cough [Unknown]
  - Drug dose omission [Unknown]
  - Product quality issue [Unknown]
  - Incorrect dose administered [Unknown]
  - Product quality issue [Unknown]
  - No adverse event [Unknown]
